FAERS Safety Report 4889769-X (Version None)
Quarter: 2006Q1

REPORT INFORMATION
  Report Type: 
  Country: None (occurrence: None)
  Receive Date: 20060123
  Receipt Date: 20060123
  Transmission Date: 20060701
  Serious: Yes (Other)
  Sender: FDA-Public Use
  Company Number: None

PATIENT
  Age: 48 Year
  Sex: Female
  Weight: 78.9259 kg

DRUGS (4)
  1. OXYCODONE HCL [Suspect]
     Indication: PAIN
     Dosage: 10 MG TWICE A DAY PO
     Route: 048
     Dates: start: 20060103, end: 20060117
  2. OXYCODONE HCL [Suspect]
     Indication: SINUS HEADACHE
     Dosage: 10 MG TWICE A DAY PO
     Route: 048
     Dates: start: 20060103, end: 20060117
  3. MEDROL [Concomitant]
  4. ACIPHEX [Concomitant]

REACTIONS (3)
  - DRUG INEFFECTIVE [None]
  - INCORRECT DOSE ADMINISTERED [None]
  - THERAPEUTIC RESPONSE UNEXPECTED WITH DRUG SUBSTITUTION [None]
